FAERS Safety Report 12064796 (Version 1)
Quarter: 2016Q1

REPORT INFORMATION
  Report Type: Spontaneous
  Country: US (occurrence: US)
  Receive Date: 20160210
  Receipt Date: 20160210
  Transmission Date: 20160526
  Serious: No
  Sender: FDA-Public Use
  Company Number: US-ALLERGAN-1516542US

PATIENT
  Sex: Female

DRUGS (1)
  1. BOTOX COSMETIC [Suspect]
     Active Substance: ONABOTULINUMTOXINA
     Indication: PRODUCT USED FOR UNKNOWN INDICATION
     Dosage: UNKNOWN, SINGLE
     Route: 030
     Dates: start: 2012, end: 2012

REACTIONS (6)
  - Headache [Unknown]
  - Muscle tightness [Unknown]
  - Muscular weakness [Unknown]
  - Muscle atrophy [Unknown]
  - Laryngitis [Recovered/Resolved]
  - Neck pain [Unknown]
